FAERS Safety Report 6826744-X (Version None)
Quarter: 2010Q3

REPORT INFORMATION
  Report Type: 
  Country: None (occurrence: None)
  Receive Date: 20100709
  Receipt Date: 20100629
  Transmission Date: 20110219
  Serious: Yes (Other)
  Sender: FDA-Public Use
  Company Number: IL-PFIZER INC-2010083734

PATIENT
  Age: 61 Year
  Sex: Female

DRUGS (1)
  1. DETRUSITOL SR [Suspect]
     Indication: HYPERTONIC BLADDER
     Dosage: 4 MG, 1X/DAY
     Route: 048
     Dates: start: 20100201

REACTIONS (1)
  - URINARY RETENTION [None]
